FAERS Safety Report 7001481-X (Version None)
Quarter: 2010Q3

REPORT INFORMATION
  Report Type: 
  Country: None (occurrence: None)
  Receive Date: 20100920
  Receipt Date: 20100913
  Transmission Date: 20110219
  Serious: Yes (Other)
  Sender: FDA-Public Use
  Company Number: NL-ROCHE-726846

PATIENT

DRUGS (3)
  1. PEGINTERFERON ALFA-2A [Suspect]
     Route: 065
  2. RIBAVIRIN [Suspect]
     Route: 065
  3. PEGINTERFERON ALFA-2B [Suspect]
     Route: 065

REACTIONS (6)
  - ANAEMIA [None]
  - GASTROINTESTINAL ANGIODYSPLASIA [None]
  - GASTROINTESTINAL HAEMORRHAGE [None]
  - MENORRHAGIA [None]
  - OSTEOMYELITIS [None]
  - THROMBOCYTOPENIA [None]
